FAERS Safety Report 6002916-1 (Version None)
Quarter: 2008Q4

REPORT INFORMATION
  Report Type: 
  Country: None (occurrence: None)
  Receive Date: 20081212
  Receipt Date: 20081201
  Transmission Date: 20090506
  Serious: Yes (Hospitalization)
  Sender: FDA-Public Use
  Company Number: 232406K08USA

PATIENT
  Age: 57 Year
  Sex: Female
  Weight: 75 kg

DRUGS (11)
  1. REBIF [Suspect]
     Indication: MULTIPLE SCLEROSIS
     Dosage: 44 MCG, 3 IN 1 WEEKS, SUBCUTANEOUS
     Route: 058
     Dates: start: 20081001, end: 20081031
  2. WELLBUTRIN XL [Concomitant]
  3. PROVIGIL [Concomitant]
  4. SYNTHROID [Concomitant]
  5. DETROL LA [Concomitant]
  6. PREVACID [Concomitant]
  7. TIZANIDINE HCL [Concomitant]
  8. AMITRIPTYLINE HCL [Concomitant]
  9. TRAZODONE HCL [Concomitant]
  10. MULTIVITAMIN [Concomitant]
  11. STOOL SOFTENERS (DOCUSATE SODIUM) [Concomitant]

REACTIONS (5)
  - BLOOD DISORDER [None]
  - DEHYDRATION [None]
  - DIVERTICULITIS [None]
  - INFECTION [None]
  - PULMONARY THROMBOSIS [None]
